FAERS Safety Report 21871558 (Version 1)
Quarter: 2023Q1

REPORT INFORMATION
  Report Type: Spontaneous
  Country: US (occurrence: None)
  Receive Date: 20230113
  Receipt Date: 20230113
  Transmission Date: 20230418
  Serious: Yes (Other)
  Sender: FDA-Public Use
  Company Number: None

PATIENT
  Sex: Female

DRUGS (21)
  1. BENLYSTA [Suspect]
     Active Substance: BELIMUMAB
     Indication: Systemic lupus erythematosus
     Dosage: FREQUENCY : WEEKLY;  ON MONDAYS?
     Route: 058
     Dates: start: 20180222
  2. CELECOXIB CAP [Concomitant]
  3. CLOBETASOL OIN [Concomitant]
  4. CYCLOBENZAPR TAB [Concomitant]
  5. GABAPENTIN [Concomitant]
     Active Substance: GABAPENTIN
  6. HYDROXYCHLOR TAB [Concomitant]
  7. METHYLPRED TAB [Concomitant]
  8. ONDANSETRON TAB [Concomitant]
  9. OXYCODONE TAB [Concomitant]
  10. PROMETHAZINE [Concomitant]
     Active Substance: PROMETHAZINE HYDROCHLORIDE
  11. ROPINIROLE TAB [Concomitant]
  12. SUPREP BOWEL SOL PREP KIT [Concomitant]
  13. SYMPROIC TAB [Concomitant]
  14. TAMOXIFEN CITRATE [Concomitant]
     Active Substance: TAMOXIFEN CITRATE
  15. TAZORAC [Concomitant]
     Active Substance: TAZAROTENE
  16. TERBINAFINE TAB [Concomitant]
  17. TRAMADOL HCL TAB ER [Concomitant]
  18. TRETINOIN CRE [Concomitant]
  19. TRIAMCINOLON CRE [Concomitant]
  20. ZOLIPIDEM TAB [Concomitant]
  21. ZOLPIDEM ER TAB [Concomitant]

REACTIONS (3)
  - Systemic lupus erythematosus [None]
  - Discomfort [None]
  - Therapy interrupted [None]
